FAERS Safety Report 8525090 (Version 2)
Quarter: 2012Q4

REPORT INFORMATION
  Report Type: Spontaneous
  Country: US (occurrence: None)
  Receive Date: 20120416
  Receipt Date: 20120816
  Transmission Date: 20130627
  Serious: Yes (Hospitalization, Other)
  Sender: FDA-Public Use
  Company Number: 2012SGN00150

PATIENT
  Age: 36 Year
  Sex: Female

DRUGS (1)
  1. ADCETRIS [Suspect]
     Indication: ANAPLASTIC LARGE CELL LYMPHOMA T- AND NULL-CELL TYPES
     Dosage: 2
     Dates: start: 20111206, end: 201112

REACTIONS (7)
  - Urticaria [None]
  - Syncope [None]
  - Hypotension [None]
  - Pharyngeal oedema [None]
  - Abdominal pain [None]
  - Dyspnoea [None]
  - Infusion related reaction [None]
